FAERS Safety Report 18490487 (Version 1)
Quarter: 2020Q4

REPORT INFORMATION
  Report Type: Spontaneous
  Country: US (occurrence: US)
  Receive Date: 20201111
  Receipt Date: 20201111
  Transmission Date: 20210114
  Serious: No
  Sender: FDA-Public Use
  Company Number: None

PATIENT
  Age: 62 Year
  Sex: Male

DRUGS (1)
  1. COSENTYX [Suspect]
     Active Substance: SECUKINUMAB
     Indication: PSORIASIS
     Dosage: INJECT 300MG (2 PEN)S SUBCUTANEOUSLY EVERY 4  WEEK  AS DIRECTED
     Route: 058
     Dates: start: 202006

REACTIONS (2)
  - Asthenia [None]
  - Sinusitis [None]
